FAERS Safety Report 5626276-0 (Version None)
Quarter: 2008Q1

REPORT INFORMATION
  Report Type: 
  Country: None (occurrence: None)
  Receive Date: 20080213
  Receipt Date: 20080213
  Transmission Date: 20080703
  Serious: No
  Sender: FDA-Public Use
  Company Number: None

PATIENT
  Age: 74 Year
  Sex: Male
  Weight: 106.5953 kg

DRUGS (1)
  1. ZETIA [Suspect]

REACTIONS (1)
  - NO ADVERSE EVENT [None]
